FAERS Safety Report 23380536 (Version 1)
Quarter: 2024Q1

REPORT INFORMATION
  Report Type: Spontaneous
  Country: DE (occurrence: DE)
  Receive Date: 20240109
  Receipt Date: 20240109
  Transmission Date: 20240409
  Serious: No
  Sender: FDA-Public Use
  Company Number: None

PATIENT
  Age: 41 Year
  Sex: Female
  Weight: 167 kg

DRUGS (1)
  1. IBUPROFEN [Suspect]
     Active Substance: IBUPROFEN
     Indication: Tonsillitis
     Dosage: UNK
     Route: 048
     Dates: start: 20231125, end: 20231126

REACTIONS (4)
  - Hypokinesia [Unknown]
  - Fatigue [Unknown]
  - Coordination abnormal [Unknown]
  - Hypotonia [Unknown]

NARRATIVE: CASE EVENT DATE: 20231125
